FAERS Safety Report 5091513-0 (Version None)
Quarter: 2006Q3

REPORT INFORMATION
  Report Type: 
  Country: None (occurrence: None)
  Receive Date: 20060824
  Receipt Date: 20060824
  Transmission Date: 20061208
  Serious: Yes (Hospitalization, Other)
  Sender: FDA-Public Use
  Company Number: 2006AP000617

PATIENT
  Age: 72 Year
  Sex: Male
  Weight: 77.2 kg

DRUGS (7)
  1. SIMVASTATIN [Suspect]
     Dosage: 80 MG;QD
     Dates: start: 20040813, end: 20040921
  2. AMIODARONE HCL [Suspect]
     Dosage: 200 MG;QD
     Dates: start: 20040710, end: 20040921
  3. METFORMIN [Concomitant]
  4. ENALAPRIL [Concomitant]
  5. GLIMEPIRIDE [Concomitant]
  6. HYDROCHLOROTHIAZIDE [Concomitant]
  7. ASPIRIN [Concomitant]

REACTIONS (5)
  - AZOTAEMIA [None]
  - DRUG INTERACTION [None]
  - HEPATOTOXICITY [None]
  - RENAL FAILURE [None]
  - RHABDOMYOLYSIS [None]
